FAERS Safety Report 25084023 (Version 1)
Quarter: 2025Q1

REPORT INFORMATION
  Report Type: Report from Study
  Country: US (occurrence: US)
  Receive Date: 20250317
  Receipt Date: 20250317
  Transmission Date: 20250408
  Serious: No
  Sender: BIOVITRUM
  Company Number: US-BIOVITRUM-2025-US-001436

PATIENT
  Age: 44 Year
  Sex: Male

DRUGS (1)
  1. KINERET [Suspect]
     Active Substance: ANAKINRA
     Indication: Still^s disease
     Route: 058
     Dates: start: 20250107

REACTIONS (8)
  - Injection site pruritus [Unknown]
  - Injection site pain [Unknown]
  - Migraine [Unknown]
  - Off label use [Not Recovered/Not Resolved]
  - Still^s disease [Unknown]
  - Condition aggravated [Unknown]
  - Intentional product misuse [Unknown]
  - Adverse drug reaction [Unknown]

NARRATIVE: CASE EVENT DATE: 20250107
